FAERS Safety Report 21921487 (Version 2)
Quarter: 2023Q2

REPORT INFORMATION
  Report Type: Spontaneous
  Country: US (occurrence: US)
  Receive Date: 20230127
  Receipt Date: 20230628
  Transmission Date: 20230722
  Serious: Yes (Other)
  Sender: FDA-Public Use
  Company Number: US-JNJFOC-20230146836

PATIENT
  Age: 4 Year
  Sex: Male
  Weight: 79.83 kg

DRUGS (10)
  1. TYLENOL REGULAR STRENGTH [Suspect]
     Active Substance: ACETAMINOPHEN
     Indication: Back pain
     Dosage: 7 OR MORE TIMES PER WEEK
     Route: 064
     Dates: start: 200401, end: 200410
  2. TYLENOL REGULAR STRENGTH [Suspect]
     Active Substance: ACETAMINOPHEN
     Indication: Arthralgia
  3. TYLENOL EXTRA STRENGTH [Suspect]
     Active Substance: ACETAMINOPHEN
     Indication: Back pain
     Dosage: 7 OR MORE TIMES PER WEEK
     Route: 064
     Dates: start: 200401, end: 200410
  4. TYLENOL EXTRA STRENGTH [Suspect]
     Active Substance: ACETAMINOPHEN
     Indication: Arthralgia
  5. ACETAMINOPHEN [Suspect]
     Active Substance: ACETAMINOPHEN
     Indication: Back pain
     Dosage: 7 OR MORE TIMES PER WEEK.
     Route: 064
     Dates: start: 200401, end: 200410
  6. ACETAMINOPHEN [Suspect]
     Active Substance: ACETAMINOPHEN
     Indication: Arthralgia
     Dosage: 3-6 TIMES PER WEEK. CVS HEALTH EXTRA STRENGTH ACETAMINOPHEN
     Route: 064
     Dates: start: 200401, end: 200410
  7. ACETAMINOPHEN [Suspect]
     Active Substance: ACETAMINOPHEN
     Dosage: 7 OR MORE TIMES PER WEEK.
     Route: 064
     Dates: start: 200401, end: 200410
  8. ACETAMINOPHEN [Suspect]
     Active Substance: ACETAMINOPHEN
     Indication: Back pain
     Dosage: 3-6 TIMES PER WEEK.
     Route: 064
     Dates: start: 200401, end: 200410
  9. ACETAMINOPHEN [Suspect]
     Active Substance: ACETAMINOPHEN
     Indication: Arthralgia
     Dosage: 3-6 TIMES PER WEEK. CVS HEALTH EXTRA STRENGTH ACETAMINOPHEN
     Route: 064
     Dates: start: 200401, end: 200410
  10. ACETAMINOPHEN [Suspect]
     Active Substance: ACETAMINOPHEN
     Dosage: 7 OR MORE TIMES PER WEEK.
     Route: 064
     Dates: start: 200401, end: 200410

REACTIONS (2)
  - Autism spectrum disorder [Unknown]
  - Foetal exposure during pregnancy [Unknown]

NARRATIVE: CASE EVENT DATE: 20081201
